FAERS Safety Report 8646821 (Version 4)
Quarter: 2012Q4

REPORT INFORMATION
  Report Type: 
  Country: US (occurrence: US)
  Receive Date: 20120703
  Receipt Date: 20120830
  Transmission Date: 20130627
  Serious: Yes (Hospitalization)
  Sender: FDA-Public Use
  Company Number: US-PFIZER INC-2012156556

PATIENT
  Age: 45 Year
  Sex: Female
  Weight: 72.56 kg

DRUGS (8)
  1. LYRICA [Suspect]
     Indication: NERVE INJURY
     Dosage: 75 mg, 2x/day
     Route: 048
     Dates: start: 20120611, end: 201206
  2. LYRICA [Suspect]
     Indication: FIBROMYALGIA
     Dosage: 75 mg, 3x/day
     Dates: start: 201206, end: 20120724
  3. NEURONTIN [Suspect]
     Indication: NERVE INJURY
     Dosage: 300 mg, 4x/day
     Dates: start: 201201, end: 201206
  4. NEURONTIN [Suspect]
     Indication: FIBROMYALGIA
  5. NORCO [Concomitant]
     Indication: PROCEDURAL PAIN
     Dosage: 7.5/325, as needed
  6. NORCO [Concomitant]
     Dosage: 7.5/325mg
  7. SOMA [Concomitant]
     Dosage: 350 mg, 2x/day
  8. HYDROCODONE [Concomitant]
     Indication: PAIN
     Dosage: 7.5 mg, 4x/day

REACTIONS (8)
  - Blood pressure decreased [Unknown]
  - Drug ineffective [Unknown]
  - Lethargy [Recovering/Resolving]
  - Feeling abnormal [Recovered/Resolved]
  - Confusional state [Recovered/Resolved]
  - Dizziness [Recovered/Resolved]
  - Alopecia [Recovered/Resolved]
  - Mood altered [Recovered/Resolved]
